FAERS Safety Report 4981739-6 (Version None)
Quarter: 2006Q2

REPORT INFORMATION
  Report Type: 
  Country: None (occurrence: None)
  Receive Date: 20060425
  Receipt Date: 20060308
  Transmission Date: 20061013
  Serious: Yes (Hospitalization, Other)
  Sender: FDA-Public Use
  Company Number: PHEH2006US03071

PATIENT
  Age: 34 Year
  Sex: Female
  Weight: 40.816 kg

DRUGS (7)
  1. CATAPRES /USA/ [Concomitant]
  2. CLONIDINE [Concomitant]
  3. FOSAMAX [Concomitant]
  4. PREDNISONE [Concomitant]
     Indication: RENAL TRANSPLANT
     Dosage: 5 MG, QD
     Dates: start: 19991226
  5. PROCRIT [Concomitant]
     Indication: NEPHROGENIC ANAEMIA
     Dates: start: 20031004
  6. MYFORTIC [Suspect]
     Indication: RENAL TRANSPLANT
     Dosage: 720 MG, BID
     Route: 048
  7. MYFORTIC [Suspect]
     Dosage: 180 MG, BID
     Route: 048
     Dates: start: 20051021

REACTIONS (7)
  - ANAEMIA [None]
  - APLASIA PURE RED CELL [None]
  - FALL [None]
  - HAEMATOCRIT DECREASED [None]
  - LOWER LIMB FRACTURE [None]
  - OPEN FRACTURE [None]
  - SURGERY [None]
